FAERS Safety Report 7056301-4 (Version None)
Quarter: 2010Q4

REPORT INFORMATION
  Report Type: 
  Country: None (occurrence: None)
  Receive Date: 20101021
  Receipt Date: 20101012
  Transmission Date: 20110411
  Serious: Yes (Hospitalization)
  Sender: FDA-Public Use
  Company Number: FR-GENENTECH-308166

PATIENT
  Age: 83 Year
  Sex: Male

DRUGS (1)
  1. MABTHERA [Suspect]
     Indication: HAEMOLYTIC ANAEMIA
     Dosage: UNK
     Route: 042

REACTIONS (1)
  - VENOUS THROMBOSIS LIMB [None]
